FAERS Safety Report 23924476 (Version 1)
Quarter: 2024Q2

REPORT INFORMATION
  Report Type: Other
  Country: US (occurrence: US)
  Receive Date: 20240531
  Receipt Date: 20240531
  Transmission Date: 20240716
  Serious: Yes (Death)
  Sender: FDA-Public Use
  Company Number: US-ALVOGEN-2024094707

PATIENT
  Age: 43 Year
  Sex: Male

DRUGS (5)
  1. OXYCODONE [Suspect]
     Active Substance: OXYCODONE\OXYCODONE HYDROCHLORIDE
     Indication: Product used for unknown indication
     Dosage: TOOK AN UNKNOWN NUMBER OF OXYCODONE
  2. FENTANYL [Concomitant]
     Active Substance: FENTANYL\FENTANYL CITRATE
     Indication: Product used for unknown indication
  3. ALCOHOL [Concomitant]
     Active Substance: ALCOHOL
     Indication: Product used for unknown indication
  4. DOXYLAMINE [Concomitant]
     Active Substance: DOXYLAMINE
     Indication: Product used for unknown indication
  5. LIDOCAINE [Concomitant]
     Active Substance: LIDOCAINE
     Indication: Product used for unknown indication

REACTIONS (1)
  - Product counterfeit [Fatal]
